FAERS Safety Report 18656775 (Version 1)
Quarter: 2020Q4

REPORT INFORMATION
  Report Type: Spontaneous
  Country: US (occurrence: US)
  Receive Date: 20201223
  Receipt Date: 20201223
  Transmission Date: 20210114
  Serious: Yes (Death, Hospitalization, Other)
  Sender: FDA-Public Use
  Company Number: US-NAPPMUNDI-USA-2020-0181950

PATIENT
  Sex: Female

DRUGS (67)
  1. OXYCONTIN [Suspect]
     Active Substance: OXYCODONE HYDROCHLORIDE
     Dosage: 20 MG, TID
     Route: 048
     Dates: start: 20110329, end: 20110331
  2. OXYCONTIN [Suspect]
     Active Substance: OXYCODONE HYDROCHLORIDE
     Dosage: 20 MG, TID
     Route: 048
     Dates: start: 20110401, end: 20110404
  3. DILAUDID [Suspect]
     Active Substance: HYDROMORPHONE HYDROCHLORIDE
     Dosage: 4 MG, SINGLE
     Route: 042
     Dates: start: 20110918, end: 20110918
  4. DILAUDID [Suspect]
     Active Substance: HYDROMORPHONE HYDROCHLORIDE
     Dosage: 1 MG, SINGLE
     Route: 042
     Dates: start: 20111026, end: 20111026
  5. DILAUDID [Suspect]
     Active Substance: HYDROMORPHONE HYDROCHLORIDE
     Dosage: 1 MG, SINGLE
     Route: 058
     Dates: start: 20111203, end: 20111203
  6. DILAUDID [Suspect]
     Active Substance: HYDROMORPHONE HYDROCHLORIDE
     Dosage: 4 MG, SINGLE
     Route: 042
     Dates: start: 20120619, end: 20120619
  7. OXYCONTIN [Suspect]
     Active Substance: OXYCODONE HYDROCHLORIDE
     Dosage: 20 MG, Q8H PRN
     Route: 048
     Dates: start: 20101127, end: 20101127
  8. OXYCONTIN [Suspect]
     Active Substance: OXYCODONE HYDROCHLORIDE
     Dosage: 10 MG, BID
     Route: 048
  9. DILAUDID [Suspect]
     Active Substance: HYDROMORPHONE HYDROCHLORIDE
     Dosage: 2 MG, SINGLE
     Route: 042
     Dates: start: 20130424, end: 20130424
  10. DILAUDID [Suspect]
     Active Substance: HYDROMORPHONE HYDROCHLORIDE
     Dosage: 2 MG, SINGLE
     Route: 058
     Dates: start: 20130904, end: 20130904
  11. DILAUDID [Suspect]
     Active Substance: HYDROMORPHONE HYDROCHLORIDE
     Dosage: 1 MG, SINGLE
     Route: 030
     Dates: start: 20131110, end: 20131110
  12. DILAUDID [Suspect]
     Active Substance: HYDROMORPHONE HYDROCHLORIDE
     Dosage: 2 MG, DAILY
     Route: 042
     Dates: start: 20131119, end: 20131119
  13. DILAUDID [Suspect]
     Active Substance: HYDROMORPHONE HYDROCHLORIDE
     Dosage: 6 MG, PRN (EVERY 03 HOURS)
     Route: 048
     Dates: start: 20130905, end: 20130906
  14. HYDROCODONE BITARTRATE AND ACETAMINOPHEN [Suspect]
     Active Substance: ACETAMINOPHEN\HYDROCODONE BITARTRATE
     Indication: PAIN
     Dosage: UNK
     Route: 048
  15. NARCAN [Suspect]
     Active Substance: NALOXONE HYDROCHLORIDE
     Indication: PAIN
     Route: 065
  16. DILAUDID [Suspect]
     Active Substance: HYDROMORPHONE HYDROCHLORIDE
     Dosage: 1 MG, SINGLE
     Route: 042
     Dates: start: 20100930, end: 20100930
  17. DILAUDID [Suspect]
     Active Substance: HYDROMORPHONE HYDROCHLORIDE
     Dosage: 1 MG, SINGLE
     Route: 058
     Dates: start: 20110725, end: 20110725
  18. DILAUDID [Suspect]
     Active Substance: HYDROMORPHONE HYDROCHLORIDE
     Dosage: 2 MG, SINGLE
     Route: 058
     Dates: start: 20111004, end: 20111004
  19. DILAUDID [Suspect]
     Active Substance: HYDROMORPHONE HYDROCHLORIDE
     Dosage: 4 MG,  (EVERY 03 HOURS)
     Route: 058
     Dates: start: 20120430
  20. DILAUDID [Suspect]
     Active Substance: HYDROMORPHONE HYDROCHLORIDE
     Dosage: 1 MG, SINGLE
     Route: 042
     Dates: start: 20130902, end: 20130902
  21. DILAUDID [Suspect]
     Active Substance: HYDROMORPHONE HYDROCHLORIDE
     Dosage: 1 MG, PRN EVERY 02 HOURS
     Route: 042
     Dates: start: 20130906, end: 20130906
  22. DILAUDID [Suspect]
     Active Substance: HYDROMORPHONE HYDROCHLORIDE
     Dosage: 1 MG, SINGLE
     Route: 042
     Dates: start: 20131130, end: 20131130
  23. DILAUDID [Suspect]
     Active Substance: HYDROMORPHONE HYDROCHLORIDE
     Dosage: 1 MG, SINGLE
     Route: 042
     Dates: start: 20131201, end: 20131201
  24. OXYCODONE/ ACETAMINOPHEN TABLETS [Suspect]
     Active Substance: ACETAMINOPHEN\OXYCODONE HYDROCHLORIDE
     Indication: PAIN
     Dosage: UNK
     Route: 048
  25. OXYCONTIN [Suspect]
     Active Substance: OXYCODONE HYDROCHLORIDE
     Dosage: 20 MG, DAILY
     Route: 048
     Dates: start: 20110331, end: 20110331
  26. OXYCONTIN [Suspect]
     Active Substance: OXYCODONE HYDROCHLORIDE
     Dosage: 40 MG, TID
     Route: 048
     Dates: start: 20131227
  27. DILAUDID [Suspect]
     Active Substance: HYDROMORPHONE HYDROCHLORIDE
     Indication: PAIN
     Dosage: UNK
     Route: 065
  28. DILAUDID [Suspect]
     Active Substance: HYDROMORPHONE HYDROCHLORIDE
     Dosage: 1 MG, SINGLE
     Route: 042
     Dates: start: 20110725, end: 20110725
  29. DILAUDID [Suspect]
     Active Substance: HYDROMORPHONE HYDROCHLORIDE
     Dosage: 2 MG, SINGLE
     Route: 042
     Dates: start: 20110904, end: 20110904
  30. DILAUDID [Suspect]
     Active Substance: HYDROMORPHONE HYDROCHLORIDE
     Dosage: 4 MG, SINGLE
     Route: 030
     Dates: start: 20111028, end: 20111028
  31. DILAUDID [Suspect]
     Active Substance: HYDROMORPHONE HYDROCHLORIDE
     Dosage: 1 MG, SINGLE
     Route: 042
     Dates: start: 20111114, end: 20111114
  32. DILAUDID [Suspect]
     Active Substance: HYDROMORPHONE HYDROCHLORIDE
     Dosage: 4 MG, PRN (EVERY 04 HOURS)
     Route: 048
     Dates: start: 20111027, end: 20111028
  33. DILAUDID [Suspect]
     Active Substance: HYDROMORPHONE HYDROCHLORIDE
     Dosage: 6 MG, DAILY AS NEEDED
     Route: 048
  34. DILAUDID [Suspect]
     Active Substance: HYDROMORPHONE HYDROCHLORIDE
     Dosage: 4 MG, PRN (EVERY 04 HOURS)
     Route: 048
  35. DILAUDID [Suspect]
     Active Substance: HYDROMORPHONE HYDROCHLORIDE
     Dosage: 2 MG, SINGLE
     Route: 042
     Dates: start: 20110112, end: 20110112
  36. DILAUDID [Suspect]
     Active Substance: HYDROMORPHONE HYDROCHLORIDE
     Dosage: 6 MG, SINGLE
     Route: 030
     Dates: start: 20111027, end: 20111028
  37. DILAUDID [Suspect]
     Active Substance: HYDROMORPHONE HYDROCHLORIDE
     Dosage: 2 MG, SINGLE
     Route: 042
     Dates: start: 20111114, end: 20111114
  38. DILAUDID [Suspect]
     Active Substance: HYDROMORPHONE HYDROCHLORIDE
     Dosage: 2 MG, SINGLE
     Route: 042
     Dates: start: 20120420, end: 20120420
  39. DILAUDID [Suspect]
     Active Substance: HYDROMORPHONE HYDROCHLORIDE
     Dosage: 4 MG, SINGLE
     Route: 058
  40. DILAUDID [Suspect]
     Active Substance: HYDROMORPHONE HYDROCHLORIDE
     Dosage: 2 MG, PRN (EVERY 03 HOURS)
     Route: 042
     Dates: start: 20130901, end: 20130901
  41. DILAUDID [Suspect]
     Active Substance: HYDROMORPHONE HYDROCHLORIDE
     Dosage: 2 MG, SINGLE
     Route: 042
     Dates: start: 20101201, end: 20101201
  42. DILAUDID [Suspect]
     Active Substance: HYDROMORPHONE HYDROCHLORIDE
     Dosage: 2 MG, PRN (EVERY 06 HOURS)
     Route: 048
     Dates: start: 20111026, end: 20111028
  43. OXYCODONE HCL TABLETS (RHODES 91-490) [Suspect]
     Active Substance: OXYCODONE HYDROCHLORIDE
     Indication: PAIN
     Route: 048
  44. PERCOCET                           /00446701/ [Suspect]
     Active Substance: ACETAMINOPHEN\OXYCODONE HYDROCHLORIDE\OXYCODONE TEREPHTHALATE
     Indication: PAIN
     Dosage: UNK
     Route: 065
  45. DILAUDID [Suspect]
     Active Substance: HYDROMORPHONE HYDROCHLORIDE
     Dosage: UNK
     Route: 065
     Dates: start: 20100923, end: 20100923
  46. DILAUDID [Suspect]
     Active Substance: HYDROMORPHONE HYDROCHLORIDE
     Dosage: 2 MG, PRN (EVERY 02 HOURS)
     Route: 042
     Dates: start: 20101126, end: 20101126
  47. DILAUDID [Suspect]
     Active Substance: HYDROMORPHONE HYDROCHLORIDE
     Dosage: 2 MG, SINGLE
     Route: 042
     Dates: start: 20111031, end: 20111031
  48. DILAUDID [Suspect]
     Active Substance: HYDROMORPHONE HYDROCHLORIDE
     Dosage: 2 MG, SINGLE
     Route: 042
     Dates: start: 20121116, end: 20121116
  49. DILAUDID [Suspect]
     Active Substance: HYDROMORPHONE HYDROCHLORIDE
     Dosage: 1 MG, SINGLE
     Route: 042
     Dates: start: 20131219, end: 20131219
  50. DILAUDID [Suspect]
     Active Substance: HYDROMORPHONE HYDROCHLORIDE
     Dosage: 1 MG, SINGLE
     Route: 030
     Dates: start: 20130901, end: 20130901
  51. DILAUDID [Suspect]
     Active Substance: HYDROMORPHONE HYDROCHLORIDE
     Dosage: 2 MG, PRN (EVERY 02 HOURS)
     Route: 042
     Dates: start: 20130903, end: 20130906
  52. DILAUDID [Suspect]
     Active Substance: HYDROMORPHONE HYDROCHLORIDE
     Dosage: 1 MG, SINGLE
     Route: 058
     Dates: start: 20110624, end: 20110624
  53. OXYCONTIN [Suspect]
     Active Substance: OXYCODONE HYDROCHLORIDE
     Indication: PAIN
     Dosage: UNK
     Route: 048
  54. DILAUDID [Suspect]
     Active Substance: HYDROMORPHONE HYDROCHLORIDE
     Dosage: 0.5 MG, SINGLE
     Route: 042
     Dates: start: 20101124, end: 20101124
  55. DILAUDID [Suspect]
     Active Substance: HYDROMORPHONE HYDROCHLORIDE
     Dosage: 2 MG, SINGLE
     Route: 042
     Dates: start: 20120621, end: 20120621
  56. DILAUDID [Suspect]
     Active Substance: HYDROMORPHONE HYDROCHLORIDE
     Dosage: 1 MG, SINGLE
     Route: 042
     Dates: start: 20131110, end: 20131110
  57. OPANA [Suspect]
     Active Substance: OXYMORPHONE HYDROCHLORIDE
     Indication: PAIN
     Dosage: UNK
     Route: 065
  58. NORCO [Suspect]
     Active Substance: ACETAMINOPHEN\HYDROCODONE BITARTRATE
     Indication: PAIN
     Dosage: UNK
     Route: 065
  59. DILAUDID [Suspect]
     Active Substance: HYDROMORPHONE HYDROCHLORIDE
     Dosage: 4 MG, SINGLE
     Route: 042
     Dates: start: 20110120, end: 20110120
  60. DILAUDID [Suspect]
     Active Substance: HYDROMORPHONE HYDROCHLORIDE
     Dosage: 4 MG, SINGLE
     Route: 058
     Dates: start: 20110120, end: 20110120
  61. DILAUDID [Suspect]
     Active Substance: HYDROMORPHONE HYDROCHLORIDE
     Dosage: 1 MG, SINGLE
     Route: 058
     Dates: start: 20110519, end: 20110519
  62. DILAUDID [Suspect]
     Active Substance: HYDROMORPHONE HYDROCHLORIDE
     Dosage: UNK
     Route: 065
     Dates: start: 20110920, end: 20110920
  63. DILAUDID [Suspect]
     Active Substance: HYDROMORPHONE HYDROCHLORIDE
     Dosage: 2 MG, SINGLE
     Route: 042
     Dates: start: 20130726, end: 20130726
  64. DILAUDID [Suspect]
     Active Substance: HYDROMORPHONE HYDROCHLORIDE
     Indication: PAIN
     Dosage: 1 MG, PRN (EVERY 04 HOURS)
     Route: 048
     Dates: start: 20111026, end: 20111028
  65. DILAUDID [Suspect]
     Active Substance: HYDROMORPHONE HYDROCHLORIDE
     Dosage: 1 MG, SINGLE
     Route: 048
     Dates: start: 20130224, end: 20130225
  66. DILAUDID [Suspect]
     Active Substance: HYDROMORPHONE HYDROCHLORIDE
     Dosage: 2 MG, SINGLE
     Route: 048
     Dates: start: 20130225, end: 20130225
  67. DILAUDID [Suspect]
     Active Substance: HYDROMORPHONE HYDROCHLORIDE
     Dosage: 8 MG, EVERY 03 HOURS PRN
     Route: 048
     Dates: start: 20130906, end: 20130906

REACTIONS (6)
  - Suicide attempt [Unknown]
  - Depression [Unknown]
  - Respiratory failure [Fatal]
  - Drug dependence [Unknown]
  - Fibromyalgia [Unknown]
  - Overdose [Unknown]
